FAERS Safety Report 23872123 (Version 1)
Quarter: 2024Q2

REPORT INFORMATION
  Report Type: Report from Study
  Country: US (occurrence: US)
  Receive Date: 20240520
  Receipt Date: 20240520
  Transmission Date: 20240716
  Serious: Yes (Other)
  Sender: FDA-Public Use
  Company Number: US-ABBVIE-5765866

PATIENT
  Sex: Male

DRUGS (3)
  1. SKYRIZI [Suspect]
     Active Substance: RISANKIZUMAB-RZAA
     Indication: Psoriasis
     Dosage: FORM STRENGTH:150MG/ML ?WEEK 0
     Route: 058
     Dates: start: 20240406, end: 20240406
  2. SKYRIZI [Suspect]
     Active Substance: RISANKIZUMAB-RZAA
     Dosage: FORM STRENGTH:150MG/ML?WEEK 4
     Route: 058
     Dates: start: 20240504, end: 20240504
  3. SKYRIZI [Suspect]
     Active Substance: RISANKIZUMAB-RZAA
     Dosage: FORM STRENGTH:150MG/ML?THEN EVERY 12 WEEKS THEREAFTER
     Route: 058

REACTIONS (1)
  - Nephrolithiasis [Unknown]
